FAERS Safety Report 24583100 (Version 12)
Quarter: 2024Q4

REPORT INFORMATION
  Report Type: Report from Study
  Country: ES (occurrence: ES)
  Receive Date: 20241106
  Receipt Date: 20241218
  Transmission Date: 20250115
  Serious: Yes (Other)
  Sender: ABBVIE
  Company Number: ES-ABBVIE-5989605

PATIENT
  Age: 79 Year
  Sex: Male

DRUGS (10)
  1. CARBIDOPA\LEVODOPA [Suspect]
     Active Substance: CARBIDOPA\LEVODOPA
     Indication: Parkinson^s disease
     Dosage: LAST ADMIN DATE 2024, 240 MG/ML + 12 MG/ML
     Route: 058
     Dates: start: 20241028
  2. CARBIDOPA\LEVODOPA [Suspect]
     Active Substance: CARBIDOPA\LEVODOPA
     Dosage: ADJUSTS THE DOSE, 240 MG/ML + 12 MG/ML, FIRST ADMIN DATE: 2024
     Route: 058
     Dates: end: 202411
  3. CARBIDOPA\LEVODOPA [Suspect]
     Active Substance: CARBIDOPA\LEVODOPA
     Dosage: REDUCING DOSE AND REMOVING LOADING DOSE, 240 MG/ML + 12 MG/ML, LAST ADMIN DATE: NOV 2024
     Route: 058
     Dates: start: 202411
  4. CARBIDOPA\LEVODOPA [Suspect]
     Active Substance: CARBIDOPA\LEVODOPA
     Dosage: LOWER DOSES, 240 MG/ML + 12 MG/ML, LAST ADMIN DATE: NOV 2024
     Route: 058
     Dates: start: 202411
  5. CARBIDOPA\LEVODOPA [Suspect]
     Active Substance: CARBIDOPA\LEVODOPA
     Dosage: LAST ADMIN DATE: NOV 2024, LOW SPEED OF 0.32 ML/H, 240 MG/ML + 12 MG/ML
     Route: 058
     Dates: start: 202411
  6. CARBIDOPA\LEVODOPA [Suspect]
     Active Substance: CARBIDOPA\LEVODOPA
     Dosage: DECREASED THE DOSES, 240 MG/ML + 12 MG/ML
     Route: 058
     Dates: start: 202411, end: 202412
  7. CARBIDOPA\LEVODOPA [Suspect]
     Active Substance: CARBIDOPA\LEVODOPA
     Dosage: BASE SPEED OF 0.20ML/H OR LOW SPEED OF 0.15ML,. 240 MG/ML + 12 MG/ML,
     Route: 058
     Dates: start: 202412
  8. INBRIJA [Concomitant]
     Active Substance: LEVODOPA
     Indication: Product used for unknown indication
  9. SINEMET [Concomitant]
     Active Substance: CARBIDOPA\LEVODOPA
     Indication: Product used for unknown indication
     Route: 048
  10. SINEMET [Concomitant]
     Active Substance: CARBIDOPA\LEVODOPA
     Indication: Product used for unknown indication
     Route: 048

REACTIONS (23)
  - Vision blurred [Recovered/Resolved]
  - Malaise [Unknown]
  - Hallucination [Not Recovered/Not Resolved]
  - Abnormal behaviour [Unknown]
  - Abnormal behaviour [Not Recovered/Not Resolved]
  - Visual impairment [Recovered/Resolved]
  - Tremor [Not Recovered/Not Resolved]
  - Aggression [Not Recovered/Not Resolved]
  - Incoherent [Recovered/Resolved]
  - Erection increased [Unknown]
  - Dyspnoea [Not Recovered/Not Resolved]
  - Anger [Recovering/Resolving]
  - Behaviour disorder [Unknown]
  - Erection increased [Recovered/Resolved]
  - Blood pressure increased [Unknown]
  - Disorientation [Recovered/Resolved]
  - Terminal insomnia [Unknown]
  - Fall [Not Recovered/Not Resolved]
  - Loss of consciousness [Unknown]
  - Syncope [Not Recovered/Not Resolved]
  - Puncture site pain [Not Recovered/Not Resolved]
  - Hallucination, visual [Recovered/Resolved]
  - Pain in extremity [Unknown]

NARRATIVE: CASE EVENT DATE: 20240101
